FAERS Safety Report 4938850-5 (Version None)
Quarter: 2006Q1

REPORT INFORMATION
  Report Type: 
  Country: None (occurrence: None)
  Receive Date: 20060309
  Receipt Date: 20050829
  Transmission Date: 20060701
  Serious: Yes (Death, Hospitalization)
  Sender: FDA-Public Use
  Company Number: US-MERCK-0508USA04703

PATIENT
  Age: 72 Year
  Sex: Female
  Weight: 109 kg

DRUGS (3)
  1. VIOXX [Suspect]
     Indication: OSTEOARTHRITIS
     Route: 048
     Dates: start: 19991217, end: 20000201
  2. VIOXX [Suspect]
     Indication: PAIN
     Route: 048
     Dates: start: 19991217, end: 20000201
  3. TYLENOL (CAPLET) [Concomitant]
     Route: 048

REACTIONS (5)
  - CHEST PAIN [None]
  - CORONARY ARTERY DISEASE [None]
  - INJURY [None]
  - INTESTINAL ISCHAEMIA [None]
  - MYOCARDIAL INFARCTION [None]
